FAERS Safety Report 7220307-2 (Version None)
Quarter: 2011Q1

REPORT INFORMATION
  Report Type: 
  Country: None (occurrence: None)
  Receive Date: 20110111
  Receipt Date: 20110104
  Transmission Date: 20110831
  Serious: Yes (Other)
  Sender: FDA-Public Use
  Company Number: IT-BAYER-2010-003285

PATIENT
  Sex: Female

DRUGS (2)
  1. YASMIN [Suspect]
     Indication: CONTRACEPTION
     Dosage: 1 DF, QD
     Route: 048
     Dates: start: 20081001
  2. ACTIVATED CHARCOAL [Concomitant]
     Dosage: UNK
     Route: 048
     Dates: start: 20100815

REACTIONS (2)
  - UNINTENDED PREGNANCY [None]
  - ABDOMINAL DISTENSION [None]
